FAERS Safety Report 19659572 (Version 1)
Quarter: 2021Q3

REPORT INFORMATION
  Report Type: Spontaneous
  Country: CN (occurrence: CN)
  Receive Date: 20210805
  Receipt Date: 20210805
  Transmission Date: 20211014
  Serious: Yes (Hospitalization, Other)
  Sender: FDA-Public Use
  Company Number: CN-ROCHE-2881417

PATIENT
  Age: 45 Year
  Sex: Female
  Weight: 68 kg

DRUGS (9)
  1. PROMETHAZINE [Concomitant]
     Active Substance: PROMETHAZINE HYDROCHLORIDE
  2. CARBOPLATIN. [Suspect]
     Active Substance: CARBOPLATIN
     Indication: INVASIVE BREAST CARCINOMA
     Route: 041
     Dates: start: 20210717
  3. DOCETAXEL. [Suspect]
     Active Substance: DOCETAXEL
     Indication: INVASIVE BREAST CARCINOMA
     Route: 041
     Dates: start: 20210717
  4. TROPISETRON [Concomitant]
     Active Substance: TROPISETRON
  5. OMEPRAZOLE. [Concomitant]
     Active Substance: OMEPRAZOLE
  6. TIOPRONIN [Concomitant]
     Active Substance: TIOPRONIN
  7. CALCIUM GLUCONATE. [Concomitant]
     Active Substance: CALCIUM GLUCONATE
  8. DEXAMETHASONE. [Concomitant]
     Active Substance: DEXAMETHASONE
  9. HERCEPTIN [Suspect]
     Active Substance: TRASTUZUMAB
     Indication: INVASIVE BREAST CARCINOMA
     Route: 041
     Dates: start: 20210717

REACTIONS (6)
  - Nausea [Recovered/Resolved]
  - Vomiting [Recovered/Resolved]
  - Dizziness [Recovered/Resolved]
  - Abdominal distension [Recovered/Resolved]
  - Platelet count decreased [Recovered/Resolved]
  - Cytopenia [Recovering/Resolving]

NARRATIVE: CASE EVENT DATE: 20210719
